FAERS Safety Report 8775929 (Version 2)
Quarter: 2012Q4

REPORT INFORMATION
  Report Type: Report from Study
  Country: JP (occurrence: JP)
  Receive Date: 20120910
  Receipt Date: 20121001
  Transmission Date: 20130627
  Serious: Yes (Hospitalization)
  Sender: FDA-Public Use
  Company Number: JP-ROCHE-1116088

PATIENT
  Age: 78 Year
  Sex: Male
  Weight: 70 kg

DRUGS (7)
  1. RANIBIZUMAB [Suspect]
     Indication: AGE-RELATED MACULAR DEGENERATION
     Route: 050
     Dates: start: 20090703
  2. RANIBIZUMAB [Suspect]
     Route: 050
     Dates: start: 20120821
  3. CRAVIT [Concomitant]
  4. VIGAMOX [Concomitant]
  5. INTAL [Concomitant]
  6. FLUMETHOLON [Concomitant]
  7. HYALEIN [Concomitant]

REACTIONS (2)
  - Retinal artery occlusion [Recovering/Resolving]
  - Blood pressure increased [Unknown]
